FAERS Safety Report 7532816-7 (Version None)
Quarter: 2011Q2

REPORT INFORMATION
  Report Type: 
  Country: None (occurrence: None)
  Receive Date: 20110608
  Receipt Date: 20110603
  Transmission Date: 20111010
  Serious: Yes (Hospitalization, Disabling, Other)
  Sender: FDA-Public Use
  Company Number: US-PFIZER INC-2011075039

PATIENT
  Sex: Female

DRUGS (3)
  1. LEVOTHYROXINE [Concomitant]
     Indication: HYPOTHYROIDISM
     Dosage: UNK
     Dates: start: 20000101
  2. CHANTIX [Suspect]
     Indication: SMOKING CESSATION THERAPY
     Dosage: ONE A DAY FOR 7 DAYS THEN 2 PER DAY
     Dates: start: 20090930, end: 20091211
  3. CYCLOBENZAPRINE [Concomitant]
     Indication: MUSCLE RELAXANT THERAPY
     Dosage: UNK
     Dates: start: 20091209, end: 20091211

REACTIONS (11)
  - SUICIDE ATTEMPT [None]
  - PSYCHOTIC DISORDER [None]
  - THINKING ABNORMAL [None]
  - MUSCLE SPASMS [None]
  - LOSS OF CONSCIOUSNESS [None]
  - MENTAL DISORDER [None]
  - EMOTIONAL DISTRESS [None]
  - ANXIETY DISORDER [None]
  - DEPRESSION [None]
  - HALLUCINATION [None]
  - ABNORMAL BEHAVIOUR [None]
